FAERS Safety Report 8136974-5 (Version None)
Quarter: 2012Q1

REPORT INFORMATION
  Report Type: 
  Country: None (occurrence: None)
  Receive Date: 20120214
  Receipt Date: 20120210
  Transmission Date: 20120608
  Serious: Yes (Life-Threatening, Hospitalization)
  Sender: FDA-Public Use
  Company Number: AU-ASTRAZENECA-2012SE05084

PATIENT
  Age: 62 Year
  Sex: Female

DRUGS (2)
  1. CRESTOR [Suspect]
     Route: 048
     Dates: start: 20111207
  2. WARFARIN SODIUM [Concomitant]
     Indication: THROMBOSIS PROPHYLAXIS

REACTIONS (1)
  - PANCREATITIS [None]
